FAERS Safety Report 17361581 (Version 1)
Quarter: 2020Q1

REPORT INFORMATION
  Report Type: Report from Study
  Country: US (occurrence: US)
  Receive Date: 20200203
  Receipt Date: 20200203
  Transmission Date: 20200409
  Serious: Yes (Other)
  Sender: FDA-Public Use
  Company Number: US-PFIZER INC-2020039213

PATIENT

DRUGS (3)
  1. TEMSIROLIMUS. [Suspect]
     Active Substance: TEMSIROLIMUS
     Indication: RHABDOMYOSARCOMA
     Dosage: 15 MG/M2, ON DAYS 1, 8, AND 15, MAXIMUM 12 CYCLES
     Route: 042
  2. CYCLOPHOSPHAMIDE. [Suspect]
     Active Substance: CYCLOPHOSPHAMIDE
     Indication: RHABDOMYOSARCOMA
     Dosage: 1200 MG/M2, ON DAY 1, MAXIMUM 12 CYCLES
     Route: 042
  3. VINORELBINE [Suspect]
     Active Substance: VINORELBINE TARTRATE
     Indication: RHABDOMYOSARCOMA
     Dosage: 25 MG/M2, ON DAYS 1 AND 8, MAXIMUM 12 CYCLES
     Route: 042

REACTIONS (3)
  - Myelodysplastic syndrome [Unknown]
  - Second primary malignancy [Unknown]
  - Acute myeloid leukaemia [Unknown]
